FAERS Safety Report 5447577-5 (Version None)
Quarter: 2007Q3

REPORT INFORMATION
  Report Type: 
  Country: None (occurrence: None)
  Receive Date: 20070905
  Receipt Date: 20070822
  Transmission Date: 20080115
  Serious: Yes (Hospitalization)
  Sender: FDA-Public Use
  Company Number: 2007P1000550

PATIENT
  Age: 55 Year
  Sex: Male

DRUGS (3)
  1. BUSULFAN [Suspect]
     Indication: STEM CELL TRANSPLANT
     Dosage: 32.8 ML;
     Dates: start: 20070305, end: 20070308
  2. METHOTREXATE [Concomitant]
  3. CYCLOSPORINE [Concomitant]

REACTIONS (8)
  - ACUTE GRAFT VERSUS HOST DISEASE [None]
  - ANOREXIA [None]
  - CYTOMEGALOVIRUS INFECTION [None]
  - DIARRHOEA [None]
  - MALAISE [None]
  - NAUSEA [None]
  - SEPSIS [None]
  - STOMATITIS [None]
